FAERS Safety Report 25725294 (Version 1)
Quarter: 2025Q3

REPORT INFORMATION
  Report Type: Spontaneous
  Country: IN (occurrence: IN)
  Receive Date: 20250826
  Receipt Date: 20250826
  Transmission Date: 20251021
  Serious: Yes (Hospitalization, Other)
  Sender: PHARMOBEDIENT CONSULTING, LLC
  Company Number: IN-Pharmobedient-000106

PATIENT
  Age: 48 Year
  Sex: Male
  Weight: 76 kg

DRUGS (2)
  1. PREGABALIN [Suspect]
     Active Substance: PREGABALIN
     Indication: Insomnia
     Dosage: 30000 MG/DAY, 100 CAPSULES
  2. PREGABALIN [Suspect]
     Active Substance: PREGABALIN
     Indication: Seizure
     Dosage: 30000 MG/DAY, 100 CAPSULES

REACTIONS (4)
  - Drug dependence [Unknown]
  - Drug withdrawal syndrome [Recovering/Resolving]
  - Generalised oedema [Unknown]
  - Weight increased [Unknown]
